FAERS Safety Report 5762499-8 (Version None)
Quarter: 2008Q2

REPORT INFORMATION
  Report Type: 
  Country: None (occurrence: None)
  Receive Date: 20080609
  Receipt Date: 20080529
  Transmission Date: 20081010
  Serious: Yes (Death)
  Sender: FDA-Public Use
  Company Number: A0727736A

PATIENT
  Age: 63 Year
  Sex: Male
  Weight: 65.9 kg

DRUGS (1)
  1. PAXIL [Suspect]
     Indication: ANXIETY
     Dosage: 10MG PER DAY
     Route: 048
     Dates: start: 20080326, end: 20080405

REACTIONS (1)
  - COMPLETED SUICIDE [None]
